FAERS Safety Report 18482728 (Version 1)
Quarter: 2020Q4

REPORT INFORMATION
  Report Type: Spontaneous
  Country: US (occurrence: US)
  Receive Date: 20201109
  Receipt Date: 20201109
  Transmission Date: 20210114
  Serious: Yes (Other)
  Sender: FDA-Public Use
  Company Number: US-PURDUE-USA-2020-0172808

PATIENT
  Age: 60 Year
  Sex: Female

DRUGS (16)
  1. HYDROCODONE BITARTRATE AND ACETAMINOPHEN [Suspect]
     Active Substance: ACETAMINOPHEN\HYDROCODONE BITARTRATE
     Indication: PAIN
     Route: 048
  2. HYDROCODONE BITARTRATE (SIMILAR TO NDA 206627) [Suspect]
     Active Substance: HYDROCODONE BITARTRATE
     Indication: PAIN
     Route: 048
  3. FLEXERIL [Suspect]
     Active Substance: CYCLOBENZAPRINE HYDROCHLORIDE
     Indication: PAIN
     Route: 065
  4. OXYCODONE HYDROCHLORIDE (SIMILAR TO NDA 22-272) [Suspect]
     Active Substance: OXYCODONE HYDROCHLORIDE
     Indication: PAIN
     Route: 048
  5. DIFLUCAN [Concomitant]
     Active Substance: FLUCONAZOLE
     Indication: PRODUCT USED FOR UNKNOWN INDICATION
     Dosage: 150 MG, UNK
     Route: 048
  6. DOXEPIN [Concomitant]
     Active Substance: DOXEPIN
     Indication: MUSCULOSKELETAL PAIN
     Dosage: 50 MG, UNK
     Route: 065
  7. EFFEXOR [Concomitant]
     Active Substance: VENLAFAXINE HYDROCHLORIDE
     Indication: SOCIAL ANXIETY DISORDER
  8. DICLOFENAC [Suspect]
     Active Substance: DICLOFENAC
     Indication: PAIN
     Route: 065
  9. MOBIC [Concomitant]
     Active Substance: MELOXICAM
     Indication: PRODUCT USED FOR UNKNOWN INDICATION
     Dosage: 7.5 MG, UNK
     Route: 048
  10. ZETIA [Concomitant]
     Active Substance: EZETIMIBE
     Indication: DYSLIPIDAEMIA
     Route: 065
  11. LEXAPRO [Concomitant]
     Active Substance: ESCITALOPRAM OXALATE
     Indication: DEPRESSION
     Route: 065
  12. TRAMADOL. [Suspect]
     Active Substance: TRAMADOL
     Indication: PAIN
     Route: 065
  13. OXYCODONE/ ACETAMINOPHEN TABLETS [Suspect]
     Active Substance: ACETAMINOPHEN\OXYCODONE HYDROCHLORIDE
     Indication: PAIN
     Route: 048
  14. PROPOXYPHENE. [Suspect]
     Active Substance: PROPOXYPHENE
     Indication: PAIN
     Route: 065
  15. DIOVAN [Concomitant]
     Active Substance: VALSARTAN
     Indication: HYPERTENSION
     Dosage: 160 MG, DAILY
     Route: 065
  16. EFFEXOR [Concomitant]
     Active Substance: VENLAFAXINE HYDROCHLORIDE
     Indication: MAJOR DEPRESSION
     Route: 065

REACTIONS (20)
  - Drug dependence [Unknown]
  - Major depression [Unknown]
  - Hallucination, visual [Unknown]
  - Emotional distress [Unknown]
  - Diabetic neuropathy [Unknown]
  - Unevaluable event [Unknown]
  - Pain [Recovering/Resolving]
  - Ischaemic stroke [Unknown]
  - Sciatica [Unknown]
  - Iridocyclitis [Unknown]
  - Post-traumatic stress disorder [Unknown]
  - Vitreous floaters [Unknown]
  - Headache [Unknown]
  - Drug hypersensitivity [Unknown]
  - Seizure [Unknown]
  - Social anxiety disorder [Unknown]
  - Vertigo positional [Unknown]
  - Insomnia [Unknown]
  - Thinking abnormal [Unknown]
  - Cerebral disorder [Unknown]

NARRATIVE: CASE EVENT DATE: 201302
